FAERS Safety Report 8234133-9 (Version None)
Quarter: 2012Q1

REPORT INFORMATION
  Report Type: 
  Country: None (occurrence: None)
  Receive Date: 20120326
  Receipt Date: 20120319
  Transmission Date: 20120608
  Serious: Yes (Hospitalization)
  Sender: FDA-Public Use
  Company Number: GB-AMGEN-GBRCT2012017417

PATIENT
  Age: 69 Year
  Sex: Male

DRUGS (4)
  1. OXALIPLATIN [Concomitant]
     Dosage: UNK
     Dates: start: 20101206
  2. CAPECITABINE [Concomitant]
     Dosage: UNK
     Dates: start: 20101206
  3. PANITUMUMAB [Suspect]
     Indication: GASTROOESOPHAGEAL CANCER
     Dosage: UNK
     Dates: start: 20101206
  4. EPIRUBICIN [Concomitant]
     Dosage: UNK
     Dates: start: 20101206

REACTIONS (3)
  - NEUTROPENIA [None]
  - INFECTION [None]
  - DEHYDRATION [None]
